FAERS Safety Report 21390184 (Version 2)
Quarter: 2022Q4

REPORT INFORMATION
  Report Type: Spontaneous
  Country: PT (occurrence: PT)
  Receive Date: 20220929
  Receipt Date: 20221026
  Transmission Date: 20230113
  Serious: Yes (Life-Threatening, Hospitalization, Disabling, Other)
  Sender: FDA-Public Use
  Company Number: PT-MERCK-1110PRT00002

PATIENT
  Age: 70 Year
  Sex: Female

DRUGS (3)
  1. SIMVASTATIN [Suspect]
     Active Substance: SIMVASTATIN
     Indication: Skin lesion
     Dosage: UNK
  2. CYCLOSPORINE [Interacting]
     Active Substance: CYCLOSPORINE
     Indication: Skin lesion
     Dosage: UNK
  3. KETOCONAZOLE [Interacting]
     Active Substance: KETOCONAZOLE
     Indication: Skin lesion
     Dosage: UNK

REACTIONS (13)
  - Confusional state [Unknown]
  - Headache [Unknown]
  - Tremor [Unknown]
  - Myalgia [Unknown]
  - Asthenia [Unknown]
  - Rhabdomyolysis [Unknown]
  - Acute kidney injury [Unknown]
  - Hepatic function abnormal [Unknown]
  - Seizure [Unknown]
  - Malaise [Unknown]
  - Drug interaction [Unknown]
  - Gait inability [Unknown]
  - Neurotoxicity [Unknown]
